FAERS Safety Report 24857966 (Version 9)
Quarter: 2025Q2

REPORT INFORMATION
  Report Type: Spontaneous
  Country: US (occurrence: US)
  Receive Date: 20250117
  Receipt Date: 20250521
  Transmission Date: 20250717
  Serious: Yes (Other)
  Sender: SANOFI AVENTIS
  Company Number: US-SA-2025SA012530

PATIENT
  Age: 62 Year
  Sex: Male
  Weight: 88.9 kg

DRUGS (21)
  1. FABRAZYME [Suspect]
     Active Substance: AGALSIDASE BETA
     Indication: Fabry^s disease
     Dosage: 90 MG, QOW
     Route: 042
     Dates: start: 20230823
  2. FABRAZYME [Suspect]
     Active Substance: AGALSIDASE BETA
     Dosage: 90 MG, QOW
     Route: 042
  3. EPINEPHRINE [Concomitant]
     Active Substance: EPINEPHRINE
  4. SODIUM CHLORIDE [Concomitant]
     Active Substance: SODIUM CHLORIDE
  5. STERILE WATER [Concomitant]
     Active Substance: WATER
  6. DILTIAZEM [Concomitant]
     Active Substance: DILTIAZEM
  7. FISH OIL [Concomitant]
     Active Substance: FISH OIL
  8. TYLENOL [Concomitant]
     Active Substance: ACETAMINOPHEN
  9. SODIUM BICARBONATE [Concomitant]
     Active Substance: SODIUM BICARBONATE
  10. SODIUM CHLORIDE [Concomitant]
     Active Substance: SODIUM CHLORIDE
  11. LOSARTAN POTASSIUM [Concomitant]
     Active Substance: LOSARTAN POTASSIUM
  12. AMLODIPINE BESYLATE [Concomitant]
     Active Substance: AMLODIPINE BESYLATE
  13. VITAMIN D NOS [Concomitant]
     Active Substance: CHOLECALCIFEROL\ERGOCALCIFEROL
  14. ROSUVASTATIN CALCIUM [Concomitant]
     Active Substance: ROSUVASTATIN CALCIUM
  15. VITAMIN D3 [Concomitant]
     Active Substance: CHOLECALCIFEROL
  16. METOPROLOL SUCCINATE [Concomitant]
     Active Substance: METOPROLOL SUCCINATE
  17. LORATADINE [Concomitant]
     Active Substance: LORATADINE
  18. DIPHENHYDRAMINE HYDROCHLORIDE [Concomitant]
     Active Substance: DIPHENHYDRAMINE HYDROCHLORIDE
  19. CALMOSEPTINE [Concomitant]
     Active Substance: MENTHOL\ZINC OXIDE
  20. HEMORRHOIDAL [Concomitant]
     Active Substance: PHENYLEPHRINE HYDROCHLORIDE\WITCH HAZEL
  21. VITAMIN C [Concomitant]
     Active Substance: ASCORBIC ACID

REACTIONS (24)
  - Haemorrhoids [Unknown]
  - Rectal haemorrhage [Unknown]
  - Constipation [Unknown]
  - Throat irritation [Recovering/Resolving]
  - Nasopharyngitis [Recovering/Resolving]
  - Dry throat [Recovering/Resolving]
  - Secretion discharge [Recovering/Resolving]
  - Nasopharyngitis [Unknown]
  - Nasal congestion [Unknown]
  - Upper-airway cough syndrome [Unknown]
  - Cough [Unknown]
  - Fatigue [Unknown]
  - Limb injury [Unknown]
  - Infection [Unknown]
  - Skin laceration [Unknown]
  - Nail disorder [Unknown]
  - Hand fracture [Unknown]
  - Diarrhoea [Recovered/Resolved]
  - Nausea [Recovered/Resolved]
  - Dizziness postural [Unknown]
  - Back pain [Recovering/Resolving]
  - Dyspnoea [Recovered/Resolved]
  - Pain in extremity [Recovering/Resolving]
  - Fatigue [Recovered/Resolved]

NARRATIVE: CASE EVENT DATE: 20250101
